FAERS Safety Report 7676445-3 (Version None)
Quarter: 2011Q3

REPORT INFORMATION
  Report Type: 
  Country: None (occurrence: None)
  Receive Date: 20110811
  Receipt Date: 20110728
  Transmission Date: 20111222
  Serious: Yes (Hospitalization)
  Sender: FDA-Public Use
  Company Number: US-CELGENEUS-163-21880-11080084

PATIENT
  Sex: Male

DRUGS (10)
  1. TRILIPIX [Concomitant]
     Route: 065
  2. LOVAZA [Concomitant]
     Route: 065
  3. LEVOTHYROXINE SODIUM [Concomitant]
     Route: 065
  4. ZANTAC [Concomitant]
     Route: 065
  5. NIASPAN [Concomitant]
     Route: 065
  6. ZOMETA [Concomitant]
     Route: 065
  7. REVLIMID [Suspect]
     Dosage: 25 MILLIGRAM
     Route: 048
     Dates: start: 20110329
  8. ASPIRIN [Concomitant]
     Route: 065
  9. CALTRATE WITH VITAMIN D [Concomitant]
     Dosage: 600
     Route: 065
  10. VALACYCLOVIR HYDROCHLORIDE [Concomitant]
     Route: 065

REACTIONS (1)
  - TOOTH DISORDER [None]
